FAERS Safety Report 13567541 (Version 2)
Quarter: 2019Q1

REPORT INFORMATION
  Report Type: Spontaneous
  Country: US (occurrence: US)
  Receive Date: 20170522
  Receipt Date: 20190218
  Transmission Date: 20190417
  Serious: No
  Sender: FDA-Public Use
  Company Number: US-PFIZER INC-2017225093

PATIENT
  Sex: Female

DRUGS (3)
  1. ZYVOX [Suspect]
     Active Substance: LINEZOLID
     Dosage: UNK
  2. KEFLEX [Suspect]
     Active Substance: CEPHALEXIN
     Dosage: UNK
  3. TEFLARO [Suspect]
     Active Substance: CEFTAROLINE FOSAMIL
     Dosage: UNK

REACTIONS (1)
  - Drug hypersensitivity [Unknown]
